FAERS Safety Report 8973897 (Version 1)
Quarter: 2012Q4

REPORT INFORMATION
  Report Type: 
  Country: US (occurrence: US)
  Receive Date: 20121218
  Receipt Date: 20121218
  Transmission Date: 20130627
  Serious: Yes (Hospitalization)
  Sender: FDA-Public Use
  Company Number: US-GLAXOSMITHKLINE-A1005769A

PATIENT
  Age: 78 Year
  Sex: Male

DRUGS (14)
  1. VOTRIENT [Suspect]
     Indication: MALIGNANT SOFT TISSUE NEOPLASM
     Dosage: 400MG Twice per day
     Route: 048
     Dates: start: 20121018, end: 20121211
  2. GABAPENTIN [Concomitant]
  3. VALACYCLOVIR HCL [Concomitant]
  4. METHYLPHENIDATE HCL [Concomitant]
  5. ATENOLOL [Concomitant]
  6. CARISOPRODOL [Concomitant]
  7. FLUTICASONE [Concomitant]
  8. LEVOTHYROXINE SODIUM [Concomitant]
  9. IRBESARTAN [Concomitant]
  10. FENTANYL [Concomitant]
  11. HYDROMORPHONE HCL [Concomitant]
  12. ADVAIR [Concomitant]
  13. CHOLESTYRAMINE [Concomitant]
  14. PRAVASTATIN SODIUM [Concomitant]

REACTIONS (2)
  - Dehydration [Unknown]
  - Vomiting [Unknown]
